FAERS Safety Report 5211361-8 (Version None)
Quarter: 2006Q4

REPORT INFORMATION
  Report Type: 
  Country: None (occurrence: None)
  Receive Date: 20061130
  Receipt Date: 20060815
  Transmission Date: 20070319
  Serious: Yes (Disabling)
  Sender: FDA-Public Use
  Company Number: WAES 0608USA03630

PATIENT
  Age: 55 Year
  Sex: Female

DRUGS (1)
  1. FOSAMAX [Suspect]
     Indication: OSTEOPOROSIS
     Dosage: 35 MG/WKY/PO
     Route: 048
     Dates: start: 20060501, end: 20060101

REACTIONS (1)
  - PAIN IN EXTREMITY [None]
